FAERS Safety Report 13968385 (Version 1)
Quarter: 2017Q3

REPORT INFORMATION
  Report Type: Spontaneous
  Country: US (occurrence: US)
  Receive Date: 20170914
  Receipt Date: 20170914
  Transmission Date: 20171128
  Serious: Yes (Other)
  Sender: FDA-Public Use
  Company Number: US-ASTELLAS-2017US036405

PATIENT
  Age: 64 Year
  Sex: Male

DRUGS (1)
  1. LEXISCAN [Suspect]
     Active Substance: REGADENOSON
     Indication: PRODUCT USED FOR UNKNOWN INDICATION
     Dosage: UNK, OTHER (ONCE)
     Route: 065
     Dates: start: 20170908, end: 20170908

REACTIONS (3)
  - Wrong technique in product usage process [Unknown]
  - Vein rupture [Unknown]
  - Underdose [Unknown]
